FAERS Safety Report 15854231 (Version 1)
Quarter: 2019Q1

REPORT INFORMATION
  Report Type: Spontaneous
  Country: US (occurrence: US)
  Receive Date: 20190121
  Receipt Date: 20190121
  Transmission Date: 20190417
  Serious: No
  Sender: FDA-Public Use
  Company Number: None

PATIENT
  Age: 40 Year
  Sex: Female
  Weight: 72 kg

DRUGS (10)
  1. VERAPAMIL [Concomitant]
     Active Substance: VERAPAMIL HYDROCHLORIDE
  2. BUPROPION. [Concomitant]
     Active Substance: BUPROPION
  3. COSENTYX [Concomitant]
     Active Substance: SECUKINUMAB
  4. VITAMIN C [Concomitant]
     Active Substance: ASCORBIC ACID
  5. AJOVY [Suspect]
     Active Substance: FREMANEZUMAB-VFRM
  6. MELATONIN [Concomitant]
     Active Substance: MELATONIN
  7. LO LOESTRIN FE [Concomitant]
     Active Substance: ETHINYL ESTRADIOL\NORETHINDRONE ACETATE
  8. VITAMIN B [Concomitant]
     Active Substance: VITAMIN B
  9. VITAMIN D [Concomitant]
     Active Substance: CHOLECALCIFEROL
  10. MULTI VITAMIN [Concomitant]
     Active Substance: VITAMINS

REACTIONS (3)
  - Illusion [None]
  - Clumsiness [None]
  - Disorientation [None]

NARRATIVE: CASE EVENT DATE: 20181201
